FAERS Safety Report 6440073-8 (Version None)
Quarter: 2009Q4

REPORT INFORMATION
  Report Type: 
  Country: None (occurrence: None)
  Receive Date: 20091113
  Receipt Date: 20091103
  Transmission Date: 20100525
  Serious: Yes (Hospitalization)
  Sender: FDA-Public Use
  Company Number: US-JNJFOC-20091003632

PATIENT
  Sex: Female
  Weight: 32.93 kg

DRUGS (11)
  1. INFLIXIMAB [Suspect]
     Indication: INFLAMMATORY BOWEL DISEASE
     Route: 042
     Dates: start: 20060315, end: 20070301
  2. ASPIRIN [Suspect]
     Indication: DRUG USE FOR UNKNOWN INDICATION
  3. TYLENOL (CAPLET) [Concomitant]
  4. 5-AMINOSALICYLIC ACID [Concomitant]
     Route: 048
  5. FERROUS SULFATE TAB [Concomitant]
  6. OMEGA 3 FATTY ACID [Concomitant]
  7. KENALOG [Concomitant]
  8. MULTI-VITAMINS [Concomitant]
  9. FLUCONAZOLE [Concomitant]
     Route: 048
  10. AUGMENTIN [Concomitant]
  11. PERCOCET [Concomitant]

REACTIONS (4)
  - ARTERIAL THROMBOSIS LIMB [None]
  - GASTROINTESTINAL HAEMORRHAGE [None]
  - HYPOCHROMIC ANAEMIA [None]
  - WOUND DEHISCENCE [None]
